FAERS Safety Report 4892228-1 (Version None)
Quarter: 2006Q1

REPORT INFORMATION
  Report Type: 
  Country: None (occurrence: None)
  Receive Date: 20060126
  Receipt Date: 20060117
  Transmission Date: 20060701
  Serious: Yes (Hospitalization, Other)
  Sender: FDA-Public Use
  Company Number: US-AVENTIS-200610617US

PATIENT
  Age: 80 Year
  Sex: Male

DRUGS (6)
  1. LOVENOX [Suspect]
     Route: 058
  2. LOVENOX [Suspect]
     Route: 042
  3. ASPIRIN [Concomitant]
     Dosage: DOSE: UNKNOWN
  4. INTEGRILIN [Concomitant]
     Dosage: DOSE: 2MC/KG 9.5CC BOLUS X2
  5. COUMADIN [Concomitant]
  6. PLAVIX [Concomitant]

REACTIONS (4)
  - CARDIOMYOPATHY [None]
  - CATHETER RELATED COMPLICATION [None]
  - INTRACARDIAC THROMBUS [None]
  - PNEUMONIA [None]
